FAERS Safety Report 20219823 (Version 1)
Quarter: 2021Q4

REPORT INFORMATION
  Report Type: Spontaneous
  Country: US (occurrence: US)
  Receive Date: 20211222
  Receipt Date: 20211222
  Transmission Date: 20220303
  Serious: No
  Sender: FDA-Public Use
  Company Number: US-UPSHER-SMITH LABORATORIES, LLC-2021USL00591

PATIENT
  Sex: Female
  Weight: 104.33 kg

DRUGS (5)
  1. KLOR-CON M [Suspect]
     Active Substance: POTASSIUM CHLORIDE
     Indication: Blood potassium decreased
     Dosage: 60 MEQ, 1X/DAY
     Route: 048
  2. HYDROCHLOROTHIAZIDE [Concomitant]
     Active Substance: HYDROCHLOROTHIAZIDE
  3. GLIPIZIDE [Concomitant]
     Active Substance: GLIPIZIDE
     Dosage: 5 MG, 2X/DAY
  4. ATENOLOL [Concomitant]
     Active Substance: ATENOLOL
  5. SYNTHROID [Concomitant]
     Active Substance: LEVOTHYROXINE SODIUM

REACTIONS (1)
  - Foreign body in throat [Unknown]

NARRATIVE: CASE EVENT DATE: 20180101
